FAERS Safety Report 18213277 (Version 1)
Quarter: 2020Q3

REPORT INFORMATION
  Report Type: Spontaneous
  Country: IT (occurrence: IT)
  Receive Date: 20200831
  Receipt Date: 20200831
  Transmission Date: 20201103
  Serious: Yes (Hospitalization)
  Sender: FDA-Public Use
  Company Number: NVSC2020IT233048

PATIENT
  Age: 48 Year
  Sex: Female

DRUGS (1)
  1. QUETIAPINE. [Suspect]
     Active Substance: QUETIAPINE
     Indication: DEPRESSION
     Dosage: 3000 MG
     Route: 048
     Dates: start: 20200805, end: 20200805

REACTIONS (6)
  - Intentional overdose [Recovering/Resolving]
  - Psychomotor hyperactivity [Recovering/Resolving]
  - Alcohol abuse [Recovering/Resolving]
  - Intentional self-injury [Recovering/Resolving]
  - Tachycardia [Recovering/Resolving]
  - Drug abuse [Recovering/Resolving]

NARRATIVE: CASE EVENT DATE: 20200805
